FAERS Safety Report 14229620 (Version 1)
Quarter: 2017Q4

REPORT INFORMATION
  Report Type: Spontaneous
  Country: US (occurrence: None)
  Receive Date: 20171128
  Receipt Date: 20171128
  Transmission Date: 20180321
  Serious: Yes (Other)
  Sender: FDA-Public Use
  Company Number: None

PATIENT
  Age: 60 Year
  Sex: Female

DRUGS (1)
  1. PCN (PENICILLIN) 500MG [Suspect]
     Active Substance: PENICILLIN
     Indication: TOOTH ABSCESS
     Route: 048
     Dates: start: 20171014

REACTIONS (4)
  - Rash [None]
  - Skin discolouration [None]
  - Swollen tongue [None]
  - Tongue atrophy [None]
